FAERS Safety Report 9451215 (Version 1)
Quarter: 2013Q3

REPORT INFORMATION
  Report Type: Spontaneous
  Country: DE (occurrence: DE)
  Receive Date: 20130809
  Receipt Date: 20130809
  Transmission Date: 20140515
  Serious: Yes (Other)
  Sender: FDA-Public Use
  Company Number: DE-TEVA-351724GER

PATIENT
  Sex: Female

DRUGS (5)
  1. MIRTAZAPIN [Suspect]
     Indication: WEIGHT INCREASED
     Dosage: 7.5 MILLIGRAM DAILY;
     Route: 048
     Dates: start: 201112, end: 201212
  2. MIRTAZAPIN [Suspect]
     Indication: SLEEP DISORDER
     Dosage: 5 MILLIGRAM DAILY;
     Route: 048
  3. MIRTAZAPIN [Suspect]
     Indication: ANXIETY DISORDER
     Dosage: 3.75 MILLIGRAM DAILY;
     Route: 048
  4. TAVOR [Concomitant]
     Dosage: .5 MILLIGRAM DAILY;
  5. TAVOR [Concomitant]
     Dosage: .25 MILLIGRAM DAILY;

REACTIONS (26)
  - Ocular hypertension [Recovered/Resolved]
  - Drug withdrawal syndrome [Unknown]
  - Chills [Recovered/Resolved]
  - Sinusitis [Recovered/Resolved]
  - Cough [Recovered/Resolved]
  - Suffocation feeling [Recovered/Resolved]
  - Nasal congestion [Not Recovered/Not Resolved]
  - Abdominal distension [Unknown]
  - Dyspepsia [Unknown]
  - Oral pain [Unknown]
  - Sensitivity of teeth [Unknown]
  - Dysgeusia [Unknown]
  - Anxiety [Unknown]
  - Restlessness [Unknown]
  - Dry eye [Unknown]
  - Diarrhoea [Unknown]
  - Chromaturia [Unknown]
  - Insomnia [Unknown]
  - Arthralgia [Unknown]
  - Muscle spasms [Unknown]
  - Weight increased [Unknown]
  - Oedema peripheral [Unknown]
  - Renal cyst [Unknown]
  - Ovarian cyst [Unknown]
  - Thyroid cyst [Unknown]
  - Food aversion [Unknown]
